FAERS Safety Report 9086608 (Version 1)
Quarter: 2013Q1

REPORT INFORMATION
  Report Type: Spontaneous
  Country: DE (occurrence: DE)
  Receive Date: 20130131
  Receipt Date: 20130131
  Transmission Date: 20140127
  Serious: Yes (Other)
  Sender: FDA-Public Use
  Company Number: DE-WATSON-2013-00800

PATIENT
  Sex: Male

DRUGS (2)
  1. TRELSTAR [Suspect]
     Indication: PROSTATE CANCER
     Dosage: UNKNOWN
     Route: 065
     Dates: start: 201103
  2. TRELSTAR [Suspect]
     Dosage: UNKNOWN
     Route: 065
     Dates: start: 201201

REACTIONS (3)
  - Stress cardiomyopathy [Unknown]
  - Hyperhidrosis [Unknown]
  - Flushing [Unknown]
